FAERS Safety Report 5052624-9 (Version None)
Quarter: 2006Q3

REPORT INFORMATION
  Report Type: 
  Country: None (occurrence: None)
  Receive Date: 20060711
  Receipt Date: 20060619
  Transmission Date: 20061208
  Serious: Yes (Other)
  Sender: FDA-Public Use
  Company Number: FR200604004320

PATIENT
  Age: 64 Year
  Sex: Female
  Weight: 64 kg

DRUGS (2)
  1. EVISTA [Suspect]
     Indication: OSTEOPOROSIS PROPHYLAXIS
     Dosage: 60 MG, ORAL
     Route: 048
     Dates: start: 20020101, end: 20060515
  2. INDAPAMIDE [Concomitant]

REACTIONS (2)
  - DERMATITIS PSORIASIFORM [None]
  - TOXIC SKIN ERUPTION [None]
